FAERS Safety Report 9406487 (Version 3)
Quarter: 2013Q3

REPORT INFORMATION
  Report Type: Report from Study
  Country: US (occurrence: US)
  Receive Date: 20130718
  Receipt Date: 20130823
  Transmission Date: 20140515
  Serious: Yes (Other)
  Sender: FDA-Public Use
  Company Number: US-ROCHE-1249616

PATIENT
  Age: 60 Year
  Sex: Female

DRUGS (15)
  1. ACTEMRA [Suspect]
     Indication: PRODUCT USED FOR UNKNOWN INDICATION
     Route: 042
     Dates: start: 20130523
  2. TRIAZOLAM [Concomitant]
  3. METHOTREXATE [Concomitant]
  4. FOLIC ACID [Concomitant]
  5. HYDROCHLOROTHIAZIDE [Concomitant]
  6. LIDODERM [Concomitant]
     Indication: PAIN
  7. PARAFON FORTE [Concomitant]
     Route: 065
  8. CELEBREX [Concomitant]
     Route: 065
  9. BACTROBAN [Concomitant]
     Route: 065
  10. WELLBUTRIN [Concomitant]
     Route: 065
  11. LASIX [Concomitant]
     Route: 065
  12. LEXAPRO [Concomitant]
     Route: 065
  13. RESTORIL (UNITED STATES) [Concomitant]
     Route: 065
  14. LORTAB [Concomitant]
     Dosage: 10/500 MG
     Route: 065
  15. ADVAIR [Concomitant]
     Route: 065

REACTIONS (12)
  - Joint stiffness [Not Recovered/Not Resolved]
  - Swelling [Not Recovered/Not Resolved]
  - Pain [Not Recovered/Not Resolved]
  - Haemorrhage [Not Recovered/Not Resolved]
  - Quality of life decreased [Not Recovered/Not Resolved]
  - Erythema [Unknown]
  - Visual impairment [Unknown]
  - Dry skin [Unknown]
  - Contusion [Unknown]
  - Eyelid oedema [Unknown]
  - Pain in extremity [Unknown]
  - Arthralgia [Unknown]
